FAERS Safety Report 25569482 (Version 2)
Quarter: 2025Q3

REPORT INFORMATION
  Report Type: Spontaneous
  Country: US (occurrence: US)
  Receive Date: 20250716
  Receipt Date: 20250803
  Transmission Date: 20251020
  Serious: No
  Sender: BIOGEN
  Company Number: US-BIOGEN-2025BI01316929

PATIENT
  Age: 64 Year
  Sex: Female

DRUGS (1)
  1. QALSODY [Suspect]
     Active Substance: TOFERSEN
     Indication: Product used for unknown indication
     Route: 050
     Dates: start: 20250709

REACTIONS (4)
  - Pain [Unknown]
  - Fatigue [Unknown]
  - Electric shock sensation [Unknown]
  - Restlessness [Unknown]

NARRATIVE: CASE EVENT DATE: 20250723
